FAERS Safety Report 7969931-X (Version None)
Quarter: 2011Q4

REPORT INFORMATION
  Report Type: 
  Country: None (occurrence: None)
  Receive Date: 20111212
  Receipt Date: 20111205
  Transmission Date: 20120403
  Serious: Yes (Death, Hospitalization, Other)
  Sender: FDA-Public Use
  Company Number: US-BRISTOL-MYERS SQUIBB COMPANY-16270068

PATIENT
  Age: 66 Year
  Sex: Male
  Weight: 86 kg

DRUGS (2)
  1. YERVOY [Suspect]
     Indication: MALIGNANT MELANOMA
     Dosage: 4TH DOSE OF YERVOY ON 02DEC2011
  2. LORAZEPAM [Suspect]
     Dosage: 0.5 ML.INCREASE TO 1 ML

REACTIONS (2)
  - RESPIRATORY ARREST [None]
  - CONVULSION [None]
